FAERS Safety Report 13116935 (Version 1)
Quarter: 2017Q1

REPORT INFORMATION
  Report Type: Report from Study
  Country: US (occurrence: US)
  Receive Date: 20170116
  Receipt Date: 20170116
  Transmission Date: 20170428
  Serious: Yes (Other)
  Sender: FDA-Public Use
  Company Number: US-AMGEN-USASL2017005250

PATIENT
  Age: 71 Year
  Sex: Female

DRUGS (22)
  1. EFEXOR XL [Concomitant]
     Active Substance: VENLAFAXINE HYDROCHLORIDE
  2. SYMBICORT [Concomitant]
     Active Substance: BUDESONIDE\FORMOTEROL FUMARATE DIHYDRATE
  3. LOSARTAN. [Concomitant]
     Active Substance: LOSARTAN
  4. MIRALAX [Concomitant]
     Active Substance: POLYETHYLENE GLYCOL 3350
  5. PROLIA [Suspect]
     Active Substance: DENOSUMAB
     Indication: PRODUCT USED FOR UNKNOWN INDICATION
     Dosage: UNK
     Route: 065
     Dates: start: 201604
  6. HUMIRA [Concomitant]
     Active Substance: ADALIMUMAB
  7. HUMALOG [Concomitant]
     Active Substance: INSULIN LISPRO
  8. NAPROXEN. [Concomitant]
     Active Substance: NAPROXEN
  9. FLEXERIL [Concomitant]
     Active Substance: CYCLOBENZAPRINE HYDROCHLORIDE
  10. RESTASIS [Concomitant]
     Active Substance: CYCLOSPORINE
  11. PHENERGAN [Concomitant]
     Active Substance: PROMETHAZINE HYDROCHLORIDE
  12. VITAMIN D2 [Concomitant]
     Active Substance: ERGOCALCIFEROL
  13. CLOMIPHENE [Concomitant]
     Active Substance: CLOMIPHENE
  14. NEXIUM [Concomitant]
     Active Substance: ESOMEPRAZOLE MAGNESIUM
  15. ZANTAC [Concomitant]
     Active Substance: RANITIDINE HYDROCHLORIDE
  16. CALCIUM + VIT D [Concomitant]
     Active Substance: CALCIUM\VITAMIN D
  17. CRESTOR [Concomitant]
     Active Substance: ROSUVASTATIN CALCIUM
  18. FOLIC ACID. [Concomitant]
     Active Substance: FOLIC ACID
  19. SYNTHROID [Concomitant]
     Active Substance: LEVOTHYROXINE SODIUM
  20. COZAAR [Concomitant]
     Active Substance: LOSARTAN POTASSIUM
  21. METHOTREXATE. [Concomitant]
     Active Substance: METHOTREXATE
  22. MODAFINIL. [Concomitant]
     Active Substance: MODAFINIL

REACTIONS (11)
  - Pneumonia [Unknown]
  - Nausea [Unknown]
  - Cough [Unknown]
  - Eye infection staphylococcal [Unknown]
  - Ear lobe infection [Unknown]
  - Pyrexia [Unknown]
  - Bronchitis [Unknown]
  - Eye infection [Unknown]
  - Rib fracture [Unknown]
  - Cellulitis [Unknown]
  - Ear infection [Not Recovered/Not Resolved]

NARRATIVE: CASE EVENT DATE: 20160420
